FAERS Safety Report 8880203 (Version 1)
Quarter: 2012Q4

REPORT INFORMATION
  Report Type: 
  Country: US (occurrence: US)
  Receive Date: 20121101
  Receipt Date: 20121101
  Transmission Date: 20130627
  Serious: Yes (Other)
  Sender: FDA-Public Use
  Company Number: PHEH2012US018245

PATIENT
  Sex: Male
  Weight: 68.03 kg

DRUGS (2)
  1. NEORAL [Suspect]
     Indication: RENAL TRANSPLANT
     Dosage: 100 mg, BID
     Dates: start: 20121018
  2. UNSPECIFIED INGREDIENT [Suspect]
     Dates: start: 20121018

REACTIONS (4)
  - Gout [Unknown]
  - Gait disturbance [Unknown]
  - Malaise [Unknown]
  - Oedema peripheral [Unknown]
